FAERS Safety Report 5261066-2 (Version None)
Quarter: 2007Q1

REPORT INFORMATION
  Report Type: 
  Country: None (occurrence: None)
  Receive Date: 20070309
  Receipt Date: 20070226
  Transmission Date: 20070707
  Serious: Yes (Other)
  Sender: FDA-Public Use
  Company Number: US-PFIZER INC-2005136501

PATIENT
  Sex: Male
  Weight: 90.7 kg

DRUGS (10)
  1. NEURONTIN [Suspect]
     Indication: POST HERPETIC NEURALGIA
     Route: 048
     Dates: start: 20040201, end: 20050101
  2. LYRICA [Suspect]
     Indication: POST HERPETIC NEURALGIA
     Route: 048
  3. XANAX [Suspect]
     Indication: SLEEP DISORDER
     Route: 065
  4. IBUPROFEN [Suspect]
     Indication: HERPES ZOSTER
     Dates: start: 20040101, end: 20040101
  5. OXYCODONE [Suspect]
     Indication: POST HERPETIC NEURALGIA
  6. GABAPENTIN [Suspect]
  7. CYMBALTA [Concomitant]
     Route: 065
  8. TRILEPTAL [Concomitant]
     Route: 065
  9. HYDROCODONE [Concomitant]
  10. TRAMADOL HCL [Concomitant]

REACTIONS (24)
  - ACCIDENTAL EXPOSURE [None]
  - BALANCE DISORDER [None]
  - BRONCHITIS [None]
  - DIZZINESS [None]
  - DRUG INEFFECTIVE [None]
  - DYSSTASIA [None]
  - EYE DISORDER [None]
  - FEELING ABNORMAL [None]
  - FEELING DRUNK [None]
  - FORMICATION [None]
  - GAIT DISTURBANCE [None]
  - HERPES ZOSTER [None]
  - IMPAIRED DRIVING ABILITY [None]
  - INSOMNIA [None]
  - LIGAMENT INJURY [None]
  - MEMORY IMPAIRMENT [None]
  - PAIN [None]
  - POST HERPETIC NEURALGIA [None]
  - ROAD TRAFFIC ACCIDENT [None]
  - ROTATOR CUFF SYNDROME [None]
  - SHOULDER OPERATION [None]
  - SOMNOLENCE [None]
  - TENDON INJURY [None]
  - VERTIGO [None]
